FAERS Safety Report 6821802-8 (Version None)
Quarter: 2010Q3

REPORT INFORMATION
  Report Type: 
  Country: None (occurrence: None)
  Receive Date: 20100707
  Receipt Date: 20100707
  Transmission Date: 20110219
  Serious: Yes (Other)
  Sender: FDA-Public Use
  Company Number: None

PATIENT
  Age: 50 Year
  Sex: Female
  Weight: 73.4827 kg

DRUGS (2)
  1. LIPITOR [Suspect]
     Indication: BLOOD CHOLESTEROL INCREASED
     Dosage: 20 MG DAILY ORAL (047)
     Route: 048
     Dates: start: 20020201, end: 20040401
  2. LOTENSIN [Concomitant]

REACTIONS (2)
  - PANCREATIC NEUROENDOCRINE TUMOUR [None]
  - RHABDOMYOLYSIS [None]
